FAERS Safety Report 8112285-9 (Version None)
Quarter: 2012Q1

REPORT INFORMATION
  Report Type: 
  Country: None (occurrence: None)
  Receive Date: 20120203
  Receipt Date: 20120203
  Transmission Date: 20120608
  Serious: Yes (Other)
  Sender: FDA-Public Use
  Company Number: None

PATIENT
  Age: 25 Year
  Sex: Male
  Weight: 947.1 kg

DRUGS (1)
  1. OXYCODONE HCL [Suspect]
     Dosage: 40TABS
     Route: 048
     Dates: start: 20120128, end: 20120202

REACTIONS (2)
  - RASH GENERALISED [None]
  - URTICARIA [None]
